FAERS Safety Report 4831001-7 (Version None)
Quarter: 2005Q4

REPORT INFORMATION
  Report Type: 
  Country: None (occurrence: None)
  Receive Date: 20051114
  Receipt Date: 20051024
  Transmission Date: 20060501
  Serious: Yes (Other)
  Sender: FDA-Public Use
  Company Number: EWC051046277

PATIENT
  Age: 59 Year
  Sex: Female

DRUGS (1)
  1. XIGRIS [Suspect]
     Indication: SEPSIS
     Dates: start: 20050927, end: 20050928

REACTIONS (2)
  - CONDITION AGGRAVATED [None]
  - PLATELET COUNT DECREASED [None]
